FAERS Safety Report 4765683-5 (Version None)
Quarter: 2005Q3

REPORT INFORMATION
  Report Type: 
  Country: None (occurrence: None)
  Receive Date: 20050906
  Receipt Date: 20050826
  Transmission Date: 20060218
  Serious: Yes (Life-Threatening, Hospitalization)
  Sender: FDA-Public Use
  Company Number: 2005-07-1776

PATIENT
  Age: 68 Year
  Sex: Male
  Weight: 61 kg

DRUGS (10)
  1. PEG-INTRON [Suspect]
     Indication: HEPATITIS C
     Dosage: 100 MCG QW SUBCUTANEOUS
     Route: 058
     Dates: start: 20050615, end: 20050713
  2. REBETOL [Suspect]
     Indication: HEPATITIS C
     Dosage: 600 MG ORAL
     Route: 048
     Dates: start: 20040329, end: 20050722
  3. INTRON A [Suspect]
     Indication: HEPATITIS C
     Dosage: 6 MIU INTRAMUSCULAR
     Route: 030
     Dates: start: 20040329, end: 20040101
  4. GASTER TABLETS [Concomitant]
  5. PANVITAN [Concomitant]
  6. URSO TABLETS [Concomitant]
  7. GLIMICRON TABLETS [Concomitant]
  8. LASIX [Concomitant]
  9. LIVACT (ISOLEUCINE/LEUCINE/VALINE) GRANULES [Concomitant]
  10. PEGASYS [Concomitant]

REACTIONS (10)
  - ASCITES [None]
  - BREATH SOUNDS ABNORMAL [None]
  - DECREASED APPETITE [None]
  - HEPATIC NEOPLASM MALIGNANT [None]
  - HYPOALBUMINAEMIA [None]
  - IMMUNE SYSTEM DISORDER [None]
  - INFECTION [None]
  - INFLAMMATION [None]
  - PLEURAL EFFUSION [None]
  - PYOTHORAX [None]
